FAERS Safety Report 12569239 (Version 2)
Quarter: 2017Q2

REPORT INFORMATION
  Report Type: Report from Study
  Country: BR (occurrence: BR)
  Receive Date: 20160719
  Receipt Date: 20170525
  Transmission Date: 20170830
  Serious: Yes (Hospitalization, Other)
  Sender: FDA-Public Use
  Company Number: PHHY2016BR029662

PATIENT
  Sex: Male
  Weight: 33 kg

DRUGS (4)
  1. EXJADE [Suspect]
     Active Substance: DEFERASIROX
     Dosage: 500 MG, UNK
     Route: 048
  2. EXJADE [Suspect]
     Active Substance: DEFERASIROX
     Indication: SICKLE CELL ANAEMIA
     Dosage: 25 MG/KG, QD (1 TABLET OF 500 MG AND 1 TABLET OF 250 MG)
     Route: 048
     Dates: start: 2008
  3. EXJADE [Suspect]
     Active Substance: DEFERASIROX
     Dosage: 1000 MG, QD (AT NIGHT)
     Route: 048
  4. EXJADE [Suspect]
     Active Substance: DEFERASIROX
     Dosage: 25 MG/KG, QD (1 TABLET OF 500 MG AND 1 TABLET OF 250 MG)
     Route: 048

REACTIONS (10)
  - Malaise [Unknown]
  - Chest pain [Unknown]
  - Musculoskeletal pain [Unknown]
  - Nephrolithiasis [Unknown]
  - Peripheral swelling [Unknown]
  - Abdominal pain [Unknown]
  - Back pain [Recovered/Resolved]
  - Sinusitis [Unknown]
  - Abdominal distension [Unknown]
  - Arthralgia [Recovering/Resolving]
